FAERS Safety Report 24059821 (Version 1)
Quarter: 2024Q3

REPORT INFORMATION
  Report Type: Spontaneous
  Country: AU (occurrence: AU)
  Receive Date: 20240708
  Receipt Date: 20240708
  Transmission Date: 20241016
  Serious: Yes (Other)
  Sender: BAUSCH AND LOMB
  Company Number: AU-BAUSCHBL-2024BNL029432

PATIENT
  Age: 67 Year
  Sex: Male

DRUGS (10)
  1. PREDNISOLONE [Suspect]
     Active Substance: PREDNISOLONE
     Indication: Product used for unknown indication
     Route: 065
  2. CYCLOPHOSPHAMIDE [Suspect]
     Active Substance: CYCLOPHOSPHAMIDE
     Indication: Product used for unknown indication
     Route: 065
  3. UMBRALISIB [Suspect]
     Active Substance: UMBRALISIB
     Indication: Product used for unknown indication
     Route: 065
  4. BENDAMUSTINE HYDROCHLORIDE [Suspect]
     Active Substance: BENDAMUSTINE HYDROCHLORIDE
     Indication: Product used for unknown indication
     Route: 065
  5. DOXORUBICIN HYDROCHLORIDE [Suspect]
     Active Substance: DOXORUBICIN HYDROCHLORIDE
     Indication: Product used for unknown indication
     Route: 065
  6. LENALIDOMIDE [Suspect]
     Active Substance: LENALIDOMIDE
     Indication: Product used for unknown indication
     Route: 065
  7. RITUXIMAB [Suspect]
     Active Substance: RITUXIMAB
     Indication: Product used for unknown indication
     Route: 065
  8. UBLITUXIMAB [Suspect]
     Active Substance: UBLITUXIMAB
     Indication: Product used for unknown indication
     Route: 065
  9. VINBLASTINE SULFATE [Suspect]
     Active Substance: VINBLASTINE SULFATE
     Indication: Product used for unknown indication
     Route: 065
  10. VINCRISTINE SULFATE [Suspect]
     Active Substance: VINCRISTINE SULFATE
     Indication: Product used for unknown indication
     Route: 065

REACTIONS (17)
  - Cryptococcosis [Unknown]
  - Immunodeficiency common variable [Unknown]
  - Non-Hodgkin^s lymphoma recurrent [Unknown]
  - Non-Hodgkin^s lymphoma refractory [Unknown]
  - Renal impairment [Unknown]
  - Pancytopenia [Unknown]
  - Staphylococcal bacteraemia [Unknown]
  - Disease progression [Unknown]
  - Anaemia [Unknown]
  - Anisocytosis [Unknown]
  - B-lymphocyte count decreased [Unknown]
  - Gastrointestinal toxicity [Unknown]
  - Glomerular filtration rate decreased [Unknown]
  - Lethargy [Unknown]
  - Pyrexia [Unknown]
  - Respiratory symptom [Unknown]
  - Treatment failure [Unknown]
